FAERS Safety Report 25543197 (Version 1)
Quarter: 2025Q3

REPORT INFORMATION
  Report Type: Report from Study
  Country: EU (occurrence: EU)
  Receive Date: 20250711
  Receipt Date: 20250711
  Transmission Date: 20251021
  Serious: Yes (Death, Other)
  Sender: ROCHE
  Company Number: EU-ROCHE-10000054843

PATIENT

DRUGS (6)
  1. RITUXIMAB [Suspect]
     Active Substance: RITUXIMAB
     Indication: Cryoglobulinaemia
     Route: 065
  2. RITUXIMAB [Suspect]
     Active Substance: RITUXIMAB
     Dosage: FOR 4 MONTHS
     Route: 065
  3. RITUXIMAB [Suspect]
     Active Substance: RITUXIMAB
     Route: 065
  4. RITUXIMAB [Suspect]
     Active Substance: RITUXIMAB
     Route: 065
  5. AZATHIOPRINE [Suspect]
     Active Substance: AZATHIOPRINE
     Indication: Cryoglobulinaemia
     Route: 065
  6. BELIMUMAB [Suspect]
     Active Substance: BELIMUMAB
     Indication: Cryoglobulinaemia
     Route: 065

REACTIONS (21)
  - Encephalitis herpes [Unknown]
  - Sepsis [Fatal]
  - Hypogammaglobulinaemia [Unknown]
  - Peripheral ischaemia [Unknown]
  - Thrombophlebitis [Unknown]
  - Pulmonary embolism [Unknown]
  - Cerebrovascular accident [Unknown]
  - Acute pulmonary oedema [Unknown]
  - Breast cancer [Unknown]
  - Gastrointestinal carcinoma [Unknown]
  - Transitional cell carcinoma [Unknown]
  - Basal cell carcinoma [Unknown]
  - Diffuse large B-cell lymphoma [Unknown]
  - Blood creatinine increased [Unknown]
  - End stage renal disease [Unknown]
  - Liver disorder [Fatal]
  - Urinary tract infection [Unknown]
  - Bacteraemia [Unknown]
  - Skin infection [Unknown]
  - Pneumonia [Unknown]
  - Colitis [Unknown]
